FAERS Safety Report 6401558-3 (Version None)
Quarter: 2009Q4

REPORT INFORMATION
  Report Type: 
  Country: None (occurrence: None)
  Receive Date: 20091009
  Receipt Date: 20090928
  Transmission Date: 20100525
  Serious: Yes (Other)
  Sender: FDA-Public Use
  Company Number: 230064J09CAN

PATIENT
  Sex: Female

DRUGS (7)
  1. REBIF [Suspect]
     Indication: MULTIPLE SCLEROSIS
     Dosage: 44 MCG, 3 IN 1 WEEKSL 22 MCG, 3 IN 1 WEEKS, 22 MCG, 3 IN 1 WEEKS
     Dates: start: 20050926, end: 20060101
  2. REBIF [Suspect]
     Indication: MULTIPLE SCLEROSIS
     Dosage: 44 MCG, 3 IN 1 WEEKSL 22 MCG, 3 IN 1 WEEKS, 22 MCG, 3 IN 1 WEEKS
     Dates: start: 20060101
  3. REBIF [Suspect]
     Indication: MULTIPLE SCLEROSIS
     Dosage: 44 MCG, 3 IN 1 WEEKSL 22 MCG, 3 IN 1 WEEKS, 22 MCG, 3 IN 1 WEEKS
     Dates: start: 20090901
  4. GABAPENTIN [Concomitant]
  5. TOPAMAX [Concomitant]
  6. EFFEXOR [Concomitant]
  7. ESCITALOPRAM [Concomitant]

REACTIONS (3)
  - HEPATIC ENZYME INCREASED [None]
  - PULMONARY THROMBOSIS [None]
  - THROMBOSIS [None]
